FAERS Safety Report 8458789-0 (Version None)
Quarter: 2012Q2

REPORT INFORMATION
  Report Type: 
  Country: None (occurrence: None)
  Receive Date: 20120622
  Receipt Date: 20120614
  Transmission Date: 20120825
  Serious: Yes (Hospitalization)
  Sender: FDA-Public Use
  Company Number: US-BAYER-2011-112091

PATIENT
  Age: 33 Year
  Sex: Female
  Weight: 111 kg

DRUGS (4)
  1. DILANTIN [Concomitant]
     Indication: CONVULSION
     Dosage: 100 MG, TID
  2. YASMIN [Suspect]
     Indication: PREMENSTRUAL SYNDROME
  3. LEVAQUIN [Concomitant]
     Indication: LUNG INFILTRATION
     Dosage: UNK
     Dates: start: 20060404
  4. YASMIN [Suspect]
     Indication: MENSTRUATION IRREGULAR
     Dosage: UNK
     Dates: start: 20050101, end: 20060101

REACTIONS (5)
  - INJURY [None]
  - PULMONARY EMBOLISM [None]
  - PAIN [None]
  - EMOTIONAL DISTRESS [None]
  - DEEP VEIN THROMBOSIS [None]
